FAERS Safety Report 10006727 (Version 1)
Quarter: 2014Q1

REPORT INFORMATION
  Report Type: Spontaneous
  Country: GB (occurrence: GB)
  Receive Date: 20140313
  Receipt Date: 20140313
  Transmission Date: 20141002
  Serious: Yes (Other)
  Sender: FDA-Public Use
  Company Number: GB-BANPHARM-20142369

PATIENT
  Age: 24 Year
  Sex: Female

DRUGS (4)
  1. IBUPROFEN UNKNOWN PRODUCT [Suspect]
     Indication: TOOTHACHE
     Route: 048
     Dates: start: 20140217
  2. AMOXICILLIN [Concomitant]
     Indication: TOOTH INFECTION
     Dates: start: 20140214
  3. ORAJEL [Concomitant]
  4. PARACETAMOL [Concomitant]

REACTIONS (2)
  - Hypoaesthesia oral [Recovered/Resolved with Sequelae]
  - Hypoaesthesia [Recovered/Resolved with Sequelae]
